FAERS Safety Report 12922681 (Version 1)
Quarter: 2016Q4

REPORT INFORMATION
  Report Type: Spontaneous
  Country: US (occurrence: US)
  Receive Date: 20161108
  Receipt Date: 20161108
  Transmission Date: 20170207
  Serious: Yes (Hospitalization)
  Sender: FDA-Public Use
  Company Number: None

PATIENT
  Age: 58 Year
  Sex: Female
  Weight: 84.1 kg

DRUGS (20)
  1. VALPORIC ACID [Suspect]
     Active Substance: VALPROIC ACID
     Indication: ACUTE MYELOID LEUKAEMIA
     Route: 048
     Dates: start: 20161024
  2. ATIVAN [Concomitant]
     Active Substance: LORAZEPAM
  3. MYCOLOG [Concomitant]
     Active Substance: GRAMICIDIN\NEOMYCIN SULFATE\NYSTATIN\TRIAMCINOLONE ACETONIDE
  4. AZACITIDINE CELGENE [Suspect]
     Active Substance: AZACITIDINE
     Indication: ACUTE MYELOID LEUKAEMIA
     Route: 058
     Dates: start: 20161024, end: 20161028
  5. FOLIC ACID. [Concomitant]
     Active Substance: FOLIC ACID
  6. MULTIPLE VITAMIN [Concomitant]
     Active Substance: VITAMINS
  7. COMPAZINE [Concomitant]
     Active Substance: PROCHLORPERAZINE MALEATE
  8. BACTRIM [Concomitant]
     Active Substance: SULFAMETHOXAZOLE\TRIMETHOPRIM
  9. ULTRAM [Concomitant]
     Active Substance: TRAMADOL HYDROCHLORIDE
  10. REFRESH [Concomitant]
     Active Substance: UNSPECIFIED INGREDIENT
  11. DIFLUCAN [Concomitant]
     Active Substance: FLUCONAZOLE
  12. PEPCID [Concomitant]
     Active Substance: FAMOTIDINE
  13. CLARITIN [Concomitant]
     Active Substance: LORATADINE
  14. ZOFRAN [Concomitant]
     Active Substance: ONDANSETRON HYDROCHLORIDE
  15. MEDROL [Concomitant]
     Active Substance: METHYLPREDNISOLONE
  16. ZYPREXA [Concomitant]
     Active Substance: OLANZAPINE
  17. FLONASE [Concomitant]
     Active Substance: FLUTICASONE PROPIONATE
  18. HYDROCORTISONE. [Concomitant]
     Active Substance: HYDROCORTISONE
  19. PROGRAF [Concomitant]
     Active Substance: TACROLIMUS\TACROLIMUS ANHYDROUS
  20. VALTREX [Concomitant]
     Active Substance: VALACYCLOVIR HYDROCHLORIDE

REACTIONS (4)
  - Device related infection [None]
  - Sepsis [None]
  - Pseudomonas infection [None]
  - Serratia infection [None]

NARRATIVE: CASE EVENT DATE: 20161102
